FAERS Safety Report 21579618 (Version 1)
Quarter: 2022Q4

REPORT INFORMATION
  Report Type: Spontaneous
  Country: US (occurrence: None)
  Receive Date: 20221110
  Receipt Date: 20221110
  Transmission Date: 20230112
  Serious: No
  Sender: FDA-Public Use
  Company Number: None

PATIENT
  Age: 34 Year
  Sex: Male
  Weight: 126.9 kg

DRUGS (1)
  1. STELARA [Suspect]
     Active Substance: USTEKINUMAB
     Route: 042

REACTIONS (5)
  - Muscle spasms [None]
  - Chest discomfort [None]
  - Throat tightness [None]
  - Head discomfort [None]
  - Infusion related reaction [None]

NARRATIVE: CASE EVENT DATE: 20221018
